FAERS Safety Report 9298112 (Version 2)
Quarter: 2013Q2

REPORT INFORMATION
  Report Type: Spontaneous
  Country: CN (occurrence: CN)
  Receive Date: 20130520
  Receipt Date: 20130611
  Transmission Date: 20140414
  Serious: Yes (Hospitalization, Other)
  Sender: FDA-Public Use
  Company Number: CN-ELI_LILLY_AND_COMPANY-CN201305003196

PATIENT
  Age: 16 Year
  Sex: Female

DRUGS (1)
  1. SOMATROPIN [Suspect]
     Indication: TURNER^S SYNDROME

REACTIONS (8)
  - Gastrointestinal tract adenoma [Unknown]
  - Intussusception [Unknown]
  - Gastrointestinal haemorrhage [Unknown]
  - Gastritis [Unknown]
  - Vomiting [None]
  - Pyrexia [None]
  - Haemoglobin decreased [None]
  - Helicobacter test positive [None]
